FAERS Safety Report 23361494 (Version 1)
Quarter: 2024Q1

REPORT INFORMATION
  Report Type: Other
  Country: GB (occurrence: GB)
  Receive Date: 20240103
  Receipt Date: 20240103
  Transmission Date: 20240409
  Serious: Yes (Life-Threatening, Other)
  Sender: FDA-Public Use
  Company Number: None

PATIENT

DRUGS (4)
  1. GABAPENTIN [Suspect]
     Active Substance: GABAPENTIN
     Indication: Neuralgia
     Dosage: 600 MILLIGRAM, BID
     Route: 065
     Dates: start: 20220211
  2. OXYCODONE [Suspect]
     Active Substance: OXYCODONE
     Indication: Pain
     Dosage: 40 MILLIGRAM, BID
     Route: 065
     Dates: start: 20160803
  3. PROMETHAZINE [Suspect]
     Active Substance: PROMETHAZINE HYDROCHLORIDE
     Indication: Insomnia
     Dosage: UNK (25-50 MG NOCTE)
     Route: 065
     Dates: start: 20210202
  4. OXYCODONE [Suspect]
     Active Substance: OXYCODONE
     Indication: Pain
     Dosage: 10 MILLIGRAM, QID
     Route: 065
     Dates: start: 20160803

REACTIONS (4)
  - Breath holding [Unknown]
  - Hypopnoea [Unknown]
  - Dyspnoea [Unknown]
  - Respiratory depression [Recovering/Resolving]
